FAERS Safety Report 9124860 (Version 1)
Quarter: 2013Q1

REPORT INFORMATION
  Report Type: Spontaneous
  Country: US (occurrence: US)
  Receive Date: 20130227
  Receipt Date: 20130227
  Transmission Date: 20140127
  Serious: Yes (Other)
  Sender: FDA-Public Use
  Company Number: US-PFIZER INC-2013068368

PATIENT
  Age: 45 Year
  Sex: Female

DRUGS (17)
  1. EFFEXOR [Suspect]
     Indication: NECK PAIN
     Dosage: UNK
  2. EFFEXOR XR [Suspect]
     Indication: NECK PAIN
     Dosage: 150 MG, 1 (ONE), PO, EVERY AM SCHEDULED, 90 DAYS
     Route: 048
  3. CHANTIX [Suspect]
     Indication: SMOKING CESSATION THERAPY
     Dosage: 0.5-1 MG, (ONE) 2X/DAY
     Route: 048
     Dates: end: 20110311
  4. CHANTIX [Suspect]
     Indication: NICOTINE DEPENDENCE
     Dosage: 1 MG, 2X/DAY
     Route: 048
     Dates: start: 20120412
  5. BACLOFEN [Concomitant]
     Indication: MUSCLE SPASMS
     Dosage: 20 MG, 1 (ONE), PO, TID PRN
     Route: 048
  6. BACLOFEN [Concomitant]
     Dosage: UNK
     Dates: start: 20110311
  7. FENTANYL [Concomitant]
     Dosage: SINGLE 100MCG/, FENTANYL PATCH CHANGING EVERY 3 DAYS
  8. FENTANYL [Concomitant]
     Dosage: 100 MCG/HR, 1 (ONE) APPLIED TOPICALLY EVERY 48 HOURS
     Route: 061
     Dates: start: 20111020
  9. FENTANYL [Concomitant]
     Dosage: UNK
     Dates: start: 20120906
  10. FENTANYL [Concomitant]
     Dosage: 100 UG, UNK
     Dates: start: 20121105
  11. OXYCODONE [Concomitant]
     Dosage: 30 MG, 1 (ONE), PO, FOUR TIMES A DAY SCHEDULED, MAX 4 IN 24 HRS
     Route: 048
  12. TYLENOL [Concomitant]
     Dosage: 500 MG, 2 (TWO), PO, FOUR TIMES DAILY AS NEEDED
     Route: 048
  13. TYLENOL [Concomitant]
     Dosage: AS NEEDED LIMIT USE TO LESS THAN 4000MG/DAY
     Dates: start: 20110505
  14. GABAPENTIN [Concomitant]
     Dosage: UNK
  15. HYDROCORTISONE [Concomitant]
     Indication: SKIN IRRITATION
  16. METHADONE [Concomitant]
     Dosage: UNK
     Dates: start: 20120906, end: 20121003
  17. IBUPROFEN [Concomitant]
     Indication: PAIN
     Dosage: 200 MG, 3-4, ORALLY, 3X/DAY PRN PAIN, MAX 2400MG/ 24HR
     Route: 048

REACTIONS (6)
  - Urinary tract infection [Unknown]
  - Tooth disorder [Unknown]
  - Back pain [Unknown]
  - Arthropathy [Unknown]
  - Reproductive tract disorder [Unknown]
  - Nausea [Unknown]
